FAERS Safety Report 10681884 (Version 1)
Quarter: 2014Q4

REPORT INFORMATION
  Report Type: Spontaneous
  Country: MX (occurrence: None)
  Receive Date: 20141229
  Receipt Date: 20141229
  Transmission Date: 20150529
  Serious: Yes (Other)
  Sender: FDA-Public Use
  Company Number: None

PATIENT
  Age: 71 Year
  Sex: Male
  Weight: 120 kg

DRUGS (1)
  1. LASILACTON [Suspect]
     Active Substance: FUROSEMIDE\SPIRONOLACTONE
     Indication: OEDEMA PERIPHERAL
     Dosage: 1 PILL
     Route: 048

REACTIONS (2)
  - Drug effect decreased [None]
  - Breast pain [None]

NARRATIVE: CASE EVENT DATE: 20141227
